FAERS Safety Report 7018212-X (Version None)
Quarter: 2010Q3

REPORT INFORMATION
  Report Type: 
  Country: None (occurrence: None)
  Receive Date: 20100928
  Receipt Date: 20100920
  Transmission Date: 20110219
  Serious: Yes (Death, Other)
  Sender: FDA-Public Use
  Company Number: PT-ROCHE-728505

PATIENT

DRUGS (4)
  1. CAPECITABINE [Suspect]
     Indication: RECTAL CANCER
     Route: 048
  2. UFT [Suspect]
     Indication: RECTAL CANCER
     Dosage: 300MG/M2/DAY IN THREE FRACTIONS/DAY, 5 DAYS/WEEK.
     Route: 065
  3. LEUCOVORIN CALCIUM [Suspect]
     Indication: RECTAL CANCER
     Dosage: 90MG/DAY IN THREE FRACTIONS/DAY, 5 DAYS/WEEK
     Route: 065
  4. FLUOROURACIL [Suspect]
     Indication: RECTAL CANCER
     Dosage: 225MG/M2/DAY IN A CONTINUOUS INFUSION, 5 DAYS/WEEK. FORM: INFUSION
     Route: 042

REACTIONS (14)
  - ANAEMIA [None]
  - BLOOD CREATININE INCREASED [None]
  - DIARRHOEA [None]
  - FISTULA [None]
  - HYPERSENSITIVITY [None]
  - INFECTION [None]
  - NEUTROPENIA [None]
  - PALMAR-PLANTAR ERYTHRODYSAESTHESIA SYNDROME [None]
  - PARAESTHESIA [None]
  - PULMONARY EMBOLISM [None]
  - RADIATION SKIN INJURY [None]
  - SUBILEUS [None]
  - VOMITING [None]
  - WOUND DEHISCENCE [None]
